FAERS Safety Report 21423631 (Version 6)
Quarter: 2023Q2

REPORT INFORMATION
  Report Type: Report from Study
  Country: CA (occurrence: CA)
  Receive Date: 20221007
  Receipt Date: 20230512
  Transmission Date: 20230721
  Serious: Yes (Hospitalization)
  Sender: FDA-Public Use
  Company Number: CA-TAIHO-2022-001169

PATIENT
  Age: 76 Year
  Sex: Male

DRUGS (1)
  1. LONSURF [Suspect]
     Active Substance: TIPIRACIL HYDROCHLORIDE\TRIFLURIDINE
     Indication: Colorectal cancer metastatic
     Dosage: CURRENT CYCLE UNKNOWN.
     Route: 048
     Dates: start: 20220912, end: 20230116

REACTIONS (3)
  - Gastric ulcer [Unknown]
  - COVID-19 [Unknown]
  - Disease progression [Unknown]
